FAERS Safety Report 25515295 (Version 2)
Quarter: 2025Q3

REPORT INFORMATION
  Report Type: Spontaneous
  Country: EU (occurrence: EU)
  Receive Date: 20250704
  Receipt Date: 20250903
  Transmission Date: 20251020
  Serious: Yes (Death, Other)
  Sender: SANOFI AVENTIS
  Company Number: EU-SANOFI-02571481

PATIENT
  Age: 3 Day

DRUGS (1)
  1. DUPIXENT [Suspect]
     Active Substance: DUPILUMAB
     Indication: Dermatitis atopic
     Dates: end: 20240723

REACTIONS (4)
  - Hypoplastic left heart syndrome [Fatal]
  - Mitral valve atresia [Fatal]
  - Aortic valve atresia [Fatal]
  - Foetal exposure during pregnancy [Unknown]

NARRATIVE: CASE EVENT DATE: 20250314
